FAERS Safety Report 24356139 (Version 1)
Quarter: 2024Q3

REPORT INFORMATION
  Report Type: Spontaneous
  Country: US (occurrence: US)
  Receive Date: 20240924
  Receipt Date: 20240924
  Transmission Date: 20241017
  Serious: Yes (Hospitalization, Other)
  Sender: JOHNSON AND JOHNSON
  Company Number: US-JNJFOC-20240959729

PATIENT
  Sex: Female

DRUGS (4)
  1. XARELTO [Suspect]
     Active Substance: RIVAROXABAN
     Indication: Product used for unknown indication
     Route: 048
     Dates: end: 2024
  2. TREPROSTINIL SODIUM [Suspect]
     Active Substance: TREPROSTINIL SODIUM
     Indication: Pulmonary arterial hypertension
     Route: 058
     Dates: start: 202405
  3. TREPROSTINIL SODIUM [Suspect]
     Active Substance: TREPROSTINIL SODIUM
     Route: 058
     Dates: start: 2024
  4. OPSUMIT [Concomitant]
     Active Substance: MACITENTAN

REACTIONS (6)
  - Heavy menstrual bleeding [Unknown]
  - Product use issue [Unknown]
  - Infusion site erythema [Unknown]
  - Infusion site pain [Unknown]
  - Infusion site swelling [Unknown]
  - Infusion site haemorrhage [Unknown]

NARRATIVE: CASE EVENT DATE: 20240101
